FAERS Safety Report 11642858 (Version 2)
Quarter: 2015Q4

REPORT INFORMATION
  Report Type: Report from Study
  Country: NL (occurrence: NL)
  Receive Date: 20151020
  Receipt Date: 20151104
  Transmission Date: 20160304
  Serious: Yes (Death)
  Sender: FDA-Public Use
  Company Number: NL-VIFOR (INTERNATIONAL) INC.-VIT-2015-02736

PATIENT
  Sex: Female

DRUGS (9)
  1. ANASTROZOLE. [Concomitant]
     Active Substance: ANASTROZOLE
  2. MEBEVERINE [Concomitant]
     Active Substance: MEBEVERINE
  3. VERAPAMIL [Concomitant]
     Active Substance: VERAPAMIL HYDROCHLORIDE
  4. MIRCERA [Suspect]
     Active Substance: METHOXY POLYETHYLENE GLYCOL-EPOETIN BETA
     Indication: ANAEMIA
     Route: 058
     Dates: start: 20121128, end: 2015
  5. BETAHISTINE [Concomitant]
     Active Substance: BETAHISTINE
  6. HYDROXYZINE [Concomitant]
     Active Substance: HYDROXYZINE\HYDROXYZINE HYDROCHLORIDE
  7. TAMOXIFEN [Concomitant]
     Active Substance: TAMOXIFEN
  8. FENTANYL. [Concomitant]
     Active Substance: FENTANYL
     Dosage: 25 UG//H
     Route: 003
  9. CALCIUM CARBONATE/CHOLECALCIFEROL [Concomitant]
     Active Substance: CALCIUM CARBONATE\CHOLECALCIFEROL
     Dosage: 1.25 G/400 IU (500 MG CA)

REACTIONS (1)
  - Breast cancer metastatic [Fatal]
